FAERS Safety Report 4694776-6 (Version None)
Quarter: 2005Q2

REPORT INFORMATION
  Report Type: 
  Country: None (occurrence: None)
  Receive Date: 20050617
  Receipt Date: 20050609
  Transmission Date: 20051028
  Serious: Yes (Life-Threatening, Hospitalization)
  Sender: FDA-Public Use
  Company Number: 215017

PATIENT
  Age: 6 Year
  Sex: Female
  Weight: 17.9 kg

DRUGS (2)
  1. NUTROPIN AQ [Suspect]
     Indication: RENAL FAILURE CHRONIC
     Dosage: 0.7 MG, QD, SUBCUTANEOUS
     Route: 058
     Dates: start: 20040510, end: 20050313
  2. NUTROPIN AQ [Suspect]
     Indication: RENAL FAILURE CHRONIC
     Dosage: 0.7 MG, QD, SUBCUTANEOUS
     Route: 058
     Dates: start: 20050518

REACTIONS (17)
  - ASCITES [None]
  - ATELECTASIS [None]
  - DEEP VEIN THROMBOSIS [None]
  - HYPOKALAEMIA [None]
  - MITRAL VALVE CALCIFICATION [None]
  - NEUTROPHIL COUNT INCREASED [None]
  - PNEUMONIA INFLUENZAL [None]
  - PNEUMONIA KLEBSIELLA [None]
  - PNEUMONIA MYCOPLASMAL [None]
  - PNEUMONIA PARAINFLUENZAE VIRAL [None]
  - PSEUDOMONAS INFECTION [None]
  - PULMONARY ALVEOLAR HAEMORRHAGE [None]
  - RENAL FAILURE ACUTE [None]
  - SEPSIS [None]
  - SPLENOMEGALY [None]
  - SPUTUM CULTURE POSITIVE [None]
  - STENOTROPHOMONAS INFECTION [None]
